FAERS Safety Report 4342514-9 (Version None)
Quarter: 2004Q2

REPORT INFORMATION
  Report Type: 
  Country: None (occurrence: None)
  Receive Date: 20040415
  Receipt Date: 20040330
  Transmission Date: 20050107
  Serious: No
  Sender: FDA-Public Use
  Company Number: CART-10088

PATIENT
  Age: 30 Year
  Sex: Female

DRUGS (1)
  1. CARTICEL [Suspect]
     Indication: ARTHROPATHY
     Dosage: 1 NA ONCE IS
     Dates: start: 20010326, end: 20010326

REACTIONS (12)
  - ARTHRALGIA [None]
  - CARTILAGE HYPERTROPHY [None]
  - CHONDROPATHY [None]
  - CONTUSION [None]
  - DISCOMFORT [None]
  - FAILURE OF IMPLANT [None]
  - FALL [None]
  - FEELING ABNORMAL [None]
  - GRAFT COMPLICATION [None]
  - JOINT INJURY [None]
  - JOINT SWELLING [None]
  - LOOSE BODY IN JOINT [None]
